FAERS Safety Report 4542227-4 (Version None)
Quarter: 2004Q4

REPORT INFORMATION
  Report Type: 
  Country: None (occurrence: None)
  Receive Date: 20041227
  Receipt Date: 20041214
  Transmission Date: 20050328
  Serious: Yes (Hospitalization, Other)
  Sender: FDA-Public Use
  Company Number: HQWYE023916DEC04

PATIENT

DRUGS (4)
  1. EFFEXOR XR [Suspect]
     Indication: ANXIETY DISORDER
     Dosage: 225 MG 1X PER 1 DAY, ORAL
     Route: 048
  2. EFFEXOR XR [Suspect]
     Indication: MAJOR DEPRESSION
     Dosage: 225 MG 1X PER 1 DAY, ORAL
     Route: 048
  3. EFFEXOR XR [Suspect]
     Indication: SOCIAL PHOBIA
     Dosage: 225 MG 1X PER 1 DAY, ORAL
     Route: 048
  4. VITAMINS (VITAMINS) [Concomitant]

REACTIONS (4)
  - DRUG EXPOSURE DURING PREGNANCY [None]
  - DYSPNOEA [None]
  - LETHARGY [None]
  - NEONATAL DISORDER [None]
